FAERS Safety Report 7045326-0 (Version None)
Quarter: 2010Q4

REPORT INFORMATION
  Report Type: 
  Country: None (occurrence: None)
  Receive Date: 20101014
  Receipt Date: 20100819
  Transmission Date: 20110411
  Serious: No
  Sender: FDA-Public Use
  Company Number: US-ALLERGAN-1010911US

PATIENT
  Age: 59 Year
  Sex: Female

DRUGS (2)
  1. LATISSE [Suspect]
     Indication: GROWTH OF EYELASHES
     Dosage: 2 GTT, UNKNOWN
     Route: 061
     Dates: start: 20090101
  2. OTC EYE DROPS [Concomitant]

REACTIONS (2)
  - DRUG INEFFECTIVE [None]
  - INCORRECT DOSE ADMINISTERED [None]
